FAERS Safety Report 12735848 (Version 3)
Quarter: 2016Q4

REPORT INFORMATION
  Report Type: Spontaneous
  Country: US (occurrence: US)
  Receive Date: 20160912
  Receipt Date: 20161020
  Transmission Date: 20170207
  Serious: No
  Sender: FDA-Public Use
  Company Number: US-G+W LABS-GW2016US000105

PATIENT

DRUGS (1)
  1. TRIAMCINOLONE ACETONIDE. [Suspect]
     Active Substance: TRIAMCINOLONE ACETONIDE
     Indication: RASH PAPULAR
     Dosage: UNK, 2-3 TIMES A WEEK
     Route: 065

REACTIONS (2)
  - Proctalgia [Recovered/Resolved]
  - Diarrhoea [Recovered/Resolved]
